FAERS Safety Report 4620513-7 (Version None)
Quarter: 2005Q1

REPORT INFORMATION
  Report Type: 
  Country: None (occurrence: None)
  Receive Date: 20050328
  Receipt Date: 20041013
  Transmission Date: 20050727
  Serious: Yes (Hospitalization, Other)
  Sender: FDA-Public Use
  Company Number: US-GLAXOSMITHKLINE-A0530168A

PATIENT
  Sex: Female
  Weight: 103.2 kg

DRUGS (14)
  1. AVANDIA [Suspect]
     Indication: DIABETES MELLITUS NON-INSULIN-DEPENDENT
     Dates: start: 19991025, end: 20010315
  2. GLUCOPHAGE [Concomitant]
     Indication: DRUG USE FOR UNKNOWN INDICATION
     Dates: end: 20010315
  3. GEMFIBROZIL [Concomitant]
     Indication: DRUG USE FOR UNKNOWN INDICATION
     Dates: end: 20010315
  4. PROZAC [Concomitant]
     Indication: DRUG USE FOR UNKNOWN INDICATION
     Dosage: 20MG PER DAY
     Route: 048
  5. ULTRALENTE INSULIN [Concomitant]
     Indication: DRUG USE FOR UNKNOWN INDICATION
  6. HUMALOG [Concomitant]
     Indication: DIABETES MELLITUS NON-INSULIN-DEPENDENT
  7. LASIX [Concomitant]
     Indication: DRUG USE FOR UNKNOWN INDICATION
  8. K-DUR 10 [Concomitant]
     Indication: DRUG USE FOR UNKNOWN INDICATION
  9. PROVERA [Concomitant]
     Indication: DRUG USE FOR UNKNOWN INDICATION
     Dosage: 5MG PER DAY
     Route: 048
  10. ESTRACE [Concomitant]
     Indication: DRUG USE FOR UNKNOWN INDICATION
     Dosage: 1MG PER DAY
     Route: 048
  11. ACCUPRIL [Concomitant]
     Indication: DRUG USE FOR UNKNOWN INDICATION
     Dosage: 10MG PER DAY
     Route: 048
  12. INDERAL [Concomitant]
     Indication: DRUG USE FOR UNKNOWN INDICATION
     Dosage: 10MG FOUR TIMES PER DAY
     Route: 048
  13. ZANTAC [Concomitant]
     Indication: DRUG USE FOR UNKNOWN INDICATION
     Dosage: 150MG TWICE PER DAY
     Route: 048
  14. PERCOCET [Concomitant]
     Indication: DRUG USE FOR UNKNOWN INDICATION

REACTIONS (20)
  - ABDOMINAL PAIN [None]
  - ALANINE AMINOTRANSFERASE INCREASED [None]
  - ASCITES [None]
  - ASPARTATE AMINOTRANSFERASE INCREASED [None]
  - BILE DUCT STONE [None]
  - BLOOD ALCOHOL INCREASED [None]
  - BLOOD ALKALINE PHOSPHATASE INCREASED [None]
  - CONFUSIONAL STATE [None]
  - DIABETIC GASTROPARESIS [None]
  - DIARRHOEA [None]
  - DISORIENTATION [None]
  - HEPATIC CIRRHOSIS [None]
  - HIATUS HERNIA [None]
  - JAUNDICE [None]
  - KLEBSIELLA INFECTION [None]
  - OBSTRUCTION [None]
  - PERITONITIS BACTERIAL [None]
  - PYREXIA [None]
  - VARICES OESOPHAGEAL [None]
  - VOMITING [None]
